FAERS Safety Report 25776126 (Version 1)
Quarter: 2025Q3

REPORT INFORMATION
  Report Type: Spontaneous
  Country: US (occurrence: US)
  Receive Date: 20250909
  Receipt Date: 20250909
  Transmission Date: 20251021
  Serious: No
  Sender: DOMPE FARMACEUTICI
  Company Number: US-FARMAPROD-202408-2903

PATIENT
  Age: 76 Year
  Sex: Male

DRUGS (17)
  1. OXERVATE [Suspect]
     Active Substance: CENEGERMIN-BKBJ
     Indication: Neurotrophic keratopathy
     Route: 047
     Dates: start: 20240806
  2. OXERVATE [Suspect]
     Active Substance: CENEGERMIN-BKBJ
  3. LUTEIN [Concomitant]
     Active Substance: LUTEIN
  4. POTASSIUM [Concomitant]
     Active Substance: POTASSIUM
  5. CALCIUM\MAGNESIUM [Concomitant]
     Active Substance: CALCIUM\MAGNESIUM
  6. ZINC [Concomitant]
     Active Substance: ZINC
  7. VITAMIN D3 [Concomitant]
     Active Substance: CHOLECALCIFEROL
  8. VITAMIN E [Concomitant]
     Active Substance: .ALPHA.-TOCOPHEROL
  9. VITAMIN K [Concomitant]
     Active Substance: PHYTONADIONE
  10. VITAMIN A [Concomitant]
     Active Substance: VITAMIN A
  11. VITAMIN B COMPLEX [Concomitant]
     Active Substance: CYANOCOBALAMIN\DEXPANTHENOL\NIACINAMIDE\PYRIDOXINE HYDROCHLORIDE\RIBOFLAVIN 5^-PHOSPHATE SODIUM\THIA
  12. SYSTANE GEL [Concomitant]
  13. SPIRONOLACTONE [Concomitant]
     Active Substance: SPIRONOLACTONE
  14. ENTRESTO [Concomitant]
     Active Substance: SACUBITRIL\VALSARTAN
  15. ELIQUIS [Concomitant]
     Active Substance: APIXABAN
  16. ROSUVASTATIN CALCIUM [Concomitant]
     Active Substance: ROSUVASTATIN CALCIUM
  17. METOPROLOL SUCCINATE [Concomitant]
     Active Substance: METOPROLOL SUCCINATE

REACTIONS (1)
  - Eye pain [Recovered/Resolved]

NARRATIVE: CASE EVENT DATE: 20240809
